FAERS Safety Report 15681244 (Version 3)
Quarter: 2018Q4

REPORT INFORMATION
  Report Type: Spontaneous
  Country: JP (occurrence: JP)
  Receive Date: 20181203
  Receipt Date: 20181212
  Transmission Date: 20190205
  Serious: Yes (Other)
  Sender: FDA-Public Use
  Company Number: JP-PFIZER INC-2018495371

PATIENT
  Age: 78 Year
  Sex: Male
  Weight: 47 kg

DRUGS (6)
  1. G-CSF [Suspect]
     Active Substance: GRANULOCYTE COLONY-STIMULATING FACTOR NOS
     Indication: FEBRILE NEUTROPENIA
     Dosage: UNK
  2. PIPERACILLIN/TAZOBACTAM [Suspect]
     Active Substance: PIPERACILLIN SODIUM\TAZOBACTAM SODIUM
     Indication: PNEUMONIA BACTERIAL
     Dosage: UNK
  3. TIPIRACIL/TRIFLURIDINE [Concomitant]
     Indication: METASTASES TO LIVER
  4. TIPIRACIL/TRIFLURIDINE [Concomitant]
     Indication: COLORECTAL CANCER
  5. TIPIRACIL/TRIFLURIDINE [Concomitant]
     Indication: RECTAL CANCER
     Dosage: UNK
  6. TIPIRACIL/TRIFLURIDINE [Concomitant]
     Indication: METASTASES TO LUNG

REACTIONS (2)
  - Drug ineffective [Recovering/Resolving]
  - Interstitial lung disease [Recovering/Resolving]
